FAERS Safety Report 4596661-7 (Version None)
Quarter: 2005Q1

REPORT INFORMATION
  Report Type: 
  Country: None (occurrence: None)
  Receive Date: 20050228
  Receipt Date: 20040408
  Transmission Date: 20050727
  Serious: Yes (Hospitalization)
  Sender: FDA-Public Use
  Company Number: 7804

PATIENT
  Age: 56 Year
  Sex: Female

DRUGS (5)
  1. METHOTREXATE [Suspect]
     Indication: BREAST CANCER
     Dosage: 80 MG PER_CYCLE IV
     Route: 042
     Dates: start: 20040227
  2. FLUOROURACIL [Suspect]
     Indication: BREAST CANCER
     Dosage: 1000 MG PER_CYCLE IV
     Route: 042
     Dates: start: 20040227
  3. CYCLOPHOSPHAMIDE [Suspect]
     Indication: BREAST CANCER
     Dosage: 1200 MG PER_CYCLE IV
     Route: 042
     Dates: start: 20040227
  4. CO-PROXAMOL [Concomitant]
  5. EPIRUBICIN [Concomitant]

REACTIONS (2)
  - CELLULITIS [None]
  - NEUTROPENIC SEPSIS [None]
